FAERS Safety Report 4969477-7 (Version None)
Quarter: 2006Q2

REPORT INFORMATION
  Report Type: 
  Country: None (occurrence: None)
  Receive Date: 20060406
  Receipt Date: 20060328
  Transmission Date: 20061013
  Serious: Yes (Death)
  Sender: FDA-Public Use
  Company Number: 163-20785-06010147

PATIENT
  Age: 52 Year
  Sex: Male

DRUGS (10)
  1. THALOMID [Suspect]
     Indication: GLIOBLASTOMA MULTIFORME
     Dosage: 200 MG, QD, ORAL
     Route: 048
     Dates: start: 20050427, end: 20051201
  2. VINCRISTINE [Concomitant]
  3. DEXAMETHASONE [Concomitant]
  4. TEMODAR [Concomitant]
  5. LASIX [Concomitant]
  6. NEURONTIN [Concomitant]
  7. PEPCID [Concomitant]
  8. MEGACE [Concomitant]
  9. ASPIRIN [Concomitant]
  10. TOPOTECAN (TOPOTECAN) [Concomitant]

REACTIONS (2)
  - INTERSTITIAL LUNG DISEASE [None]
  - PNEUMONITIS [None]
